FAERS Safety Report 23488419 (Version 1)
Quarter: 2024Q1

REPORT INFORMATION
  Report Type: Spontaneous
  Country: US (occurrence: US)
  Receive Date: 20240206
  Receipt Date: 20240206
  Transmission Date: 20240410
  Serious: No
  Sender: FDA-Public Use
  Company Number: US-SA-SAC20240202000511

PATIENT
  Sex: Female
  Weight: 83 kg

DRUGS (1)
  1. DUPIXENT [Suspect]
     Active Substance: DUPILUMAB
     Indication: Nasal polyps
     Dosage: 300 MG, QOW
     Route: 058

REACTIONS (7)
  - Gait inability [Unknown]
  - Headache [Unknown]
  - Pain [Unknown]
  - Pain in extremity [Unknown]
  - Myalgia [Unknown]
  - Peripheral swelling [Recovered/Resolved]
  - Arthralgia [Unknown]
